FAERS Safety Report 5330420-2 (Version None)
Quarter: 2007Q2

REPORT INFORMATION
  Report Type: 
  Country: None (occurrence: None)
  Receive Date: 20070521
  Receipt Date: 20070509
  Transmission Date: 20071010
  Serious: Yes (Other)
  Sender: FDA-Public Use
  Company Number: JP-PFIZER INC-2007034799

PATIENT
  Age: 88 Year
  Sex: Female
  Weight: 37 kg

DRUGS (5)
  1. ZYVOX [Suspect]
     Route: 042
     Dates: start: 20070407, end: 20070424
  2. AMINO ACIDS/ELECTROLYTES/GLUCOSE/VITAMINS [Concomitant]
  3. ASPIRIN [Concomitant]
  4. FLUCONAZOLE [Concomitant]
  5. MAGNESIUM OXIDE [Concomitant]

REACTIONS (3)
  - BONE MARROW FAILURE [None]
  - HYPONATRAEMIA [None]
  - THROMBOCYTOPENIA [None]
